FAERS Safety Report 7617087-5 (Version None)
Quarter: 2011Q3

REPORT INFORMATION
  Report Type: 
  Country: None (occurrence: None)
  Receive Date: 20110718
  Receipt Date: 20110705
  Transmission Date: 20111222
  Serious: Yes (Hospitalization, Other)
  Sender: FDA-Public Use
  Company Number: US-ELI_LILLY_AND_COMPANY-US201004001188

PATIENT
  Sex: Female

DRUGS (7)
  1. FORTEO [Suspect]
     Indication: OSTEOPOROSIS
     Dosage: 20 UG, DAILY (1/D)
     Dates: start: 20091101
  2. CALCIUM CARBONATE [Concomitant]
  3. LEVOTHYROXINE SODIUM [Concomitant]
     Dosage: 88 UG, UNKNOWN
  4. GABAPENTIN [Concomitant]
     Dosage: 300 MG, 3/D
  5. CLONAZEPAM [Concomitant]
     Dosage: UNK, EACH EVENING
  6. VITAMIN B6 [Concomitant]
  7. CENTRUM [Concomitant]

REACTIONS (5)
  - ATRIAL FIBRILLATION [None]
  - OVERDOSE [None]
  - LOSS OF CONSCIOUSNESS [None]
  - BLOOD PRESSURE DECREASED [None]
  - FALL [None]
